FAERS Safety Report 9008958 (Version 1)
Quarter: 2013Q1

REPORT INFORMATION
  Report Type: Spontaneous
  Country: US (occurrence: US)
  Receive Date: 20130111
  Receipt Date: 20130111
  Transmission Date: 20140127
  Serious: Yes (Disabling, Other)
  Sender: FDA-Public Use
  Company Number: US-ASTRAZENECA-2013SE00194

PATIENT
  Age: 51 Year
  Sex: Female

DRUGS (24)
  1. RHINOCORT [Suspect]
     Dosage: TWO PUFFS IN MORNING
     Route: 045
  2. RHINOCORT [Suspect]
     Dosage: TWO PUFFS AT NIGHT
     Route: 045
  3. PRILOSEC [Suspect]
     Route: 048
  4. NEURONTIN [Concomitant]
     Indication: MIGRAINE
     Dosage: 400, THREE TIMES A DAY
  5. NEURONTIN [Concomitant]
     Indication: NEURALGIA
     Dosage: 400, THREE TIMES A DAY
  6. NEURONTIN [Concomitant]
     Indication: MIGRAINE
     Route: 048
  7. NEURONTIN [Concomitant]
     Indication: NEURALGIA
     Route: 048
  8. VICODIN [Concomitant]
     Indication: PAIN
     Dosage: 7.5 - 325, EVERY 4 -6 HOURS, AS NEEDED
  9. LEXAPRO [Concomitant]
     Indication: ANXIETY
     Dosage: 30, IN MORNING
  10. LEXAPRO [Concomitant]
     Indication: DEPRESSION
     Dosage: 30, IN MORNING
  11. CONCERTA [Concomitant]
     Indication: ASTHENIA
     Dosage: 27, IN MORNING
  12. CONCERTA [Concomitant]
     Indication: DISTURBANCE IN ATTENTION
     Dosage: 27, IN MORNING
  13. VALIUM [Concomitant]
     Indication: SLEEP DISORDER
     Dosage: 10
  14. VALIUM [Concomitant]
     Indication: HYPOTONIA
     Dosage: 10
  15. ADVAIR [Concomitant]
     Indication: ASTHMA
     Dosage: 250, ONE PUFF IN MORNING AND ONE PUFF IN EVENING
  16. ULTRAM [Concomitant]
     Indication: PAIN
     Dosage: 50, EVERY 8 HOURS
  17. AMBIEN CR [Concomitant]
     Indication: SLEEP DISORDER
     Dosage: 12.5, AT NIGHT
  18. ZYRTEC OTC [Concomitant]
     Indication: MULTIPLE ALLERGIES
     Dosage: 24 HOUR
  19. PREVACID [Concomitant]
     Indication: GASTROOESOPHAGEAL REFLUX DISEASE
     Dosage: 15, AT NIGHT
  20. ADVIL [Concomitant]
     Indication: INFLAMMATION
     Dosage: 800, TWO- THREE TIMES A DAY
  21. ADVIL [Concomitant]
     Indication: ANALGESIC THERAPY
     Dosage: 800, TWO- THREE TIMES A DAY
  22. VENTOLIN INHALER [Concomitant]
     Indication: ASTHMA
     Dosage: AS NEEDED
     Route: 055
  23. CYMBALTA [Concomitant]
     Indication: DEPRESSION
     Dosage: 60, IN MORNING
  24. CYMBALTA [Concomitant]
     Indication: PAIN
     Dosage: 60, IN MORNING

REACTIONS (14)
  - Head injury [Unknown]
  - Speech disorder [Unknown]
  - Memory impairment [Unknown]
  - Coordination abnormal [Unknown]
  - Balance disorder [Unknown]
  - Deafness [Unknown]
  - Reading disorder [Unknown]
  - Disturbance in attention [Unknown]
  - Impaired work ability [Unknown]
  - Dysgraphia [Unknown]
  - Injury [Unknown]
  - Road traffic accident [Unknown]
  - Trigger finger [Unknown]
  - Dysphagia [Unknown]
